FAERS Safety Report 6496267-9 (Version None)
Quarter: 2009Q4

REPORT INFORMATION
  Report Type: 
  Country: None (occurrence: None)
  Receive Date: 20091214
  Receipt Date: 20090708
  Transmission Date: 20100525
  Serious: No
  Sender: FDA-Public Use
  Company Number: US-BRISTOL-MYERS SQUIBB COMPANY-14695167

PATIENT
  Age: 13 Year
  Sex: Female

DRUGS (3)
  1. ABILIFY [Suspect]
     Indication: BIPOLAR DISORDER
     Dosage: STARTED ON 2MG/QD ON 06/18/2009AFTER 7 DAYS DOSE INCREASED TO 5MG,EQUAL TO 2.5MG QD.1DF HALF TABLET
     Dates: start: 20090618
  2. LAMICTAL [Concomitant]
  3. RISPERDAL [Concomitant]
     Dosage: HALF TAB

REACTIONS (1)
  - DYSTONIA [None]
